FAERS Safety Report 11999881 (Version 1)
Quarter: 2016Q1

REPORT INFORMATION
  Report Type: Report from Study
  Country: KR (occurrence: KR)
  Receive Date: 20160204
  Receipt Date: 20160204
  Transmission Date: 20160526
  Serious: Yes (Hospitalization)
  Sender: FDA-Public Use
  Company Number: KR-AMGEN-KORCT2016012296

PATIENT
  Age: 59 Year
  Sex: Female
  Weight: 70.4 kg

DRUGS (18)
  1. DOCETAXEL. [Concomitant]
     Active Substance: DOCETAXEL
     Dosage: 132 MG, UNK
     Route: 042
     Dates: start: 20160116, end: 20160116
  2. DOXORUBICIN [Concomitant]
     Active Substance: DOXORUBICIN
     Dosage: 88 MG, UNK
     Route: 042
     Dates: start: 20151205, end: 20151205
  3. DOCETAXEL. [Concomitant]
     Active Substance: DOCETAXEL
     Dosage: 132 MG, UNK
     Route: 042
     Dates: start: 20151205, end: 20151205
  4. CYCLOPHOSPHAMIDE. [Concomitant]
     Active Substance: CYCLOPHOSPHAMIDE
     Dosage: 880 MG, UNK
     Route: 042
     Dates: start: 20151226, end: 20151226
  5. CYCLOPHOSPHAMIDE. [Concomitant]
     Active Substance: CYCLOPHOSPHAMIDE
     Dosage: 880 MG, UNK
     Route: 042
     Dates: start: 20160116, end: 20160116
  6. FILGRASTIM [Concomitant]
     Active Substance: FILGRASTIM
     Dosage: 150 MUG, UNK
     Route: 058
     Dates: start: 20151211, end: 20151212
  7. DOXORUBICIN [Concomitant]
     Active Substance: DOXORUBICIN
     Dosage: 88 MG, UNK
     Route: 042
     Dates: start: 20151226, end: 20151226
  8. CEFOBACTAM [Concomitant]
     Active Substance: CEFOPERAZONE SODIUM\SULBACTAM SODIUM
     Dosage: 2 G, UNK
     Route: 042
     Dates: start: 20151231, end: 20160102
  9. TOBRAMYCIN. [Concomitant]
     Active Substance: TOBRAMYCIN
     Dosage: 200 MG, UNK
     Route: 042
     Dates: start: 20151231, end: 20160102
  10. CEFOBACTAM [Concomitant]
     Active Substance: CEFOPERAZONE SODIUM\SULBACTAM SODIUM
     Dosage: 2 G, UNK
     Route: 042
     Dates: start: 20151211, end: 20151212
  11. DOCETAXEL. [Concomitant]
     Active Substance: DOCETAXEL
     Dosage: 132 MG, UNK
     Route: 042
     Dates: start: 20151226, end: 20151226
  12. DOXORUBICIN [Concomitant]
     Active Substance: DOXORUBICIN
     Dosage: 88 MG, UNK
     Route: 042
     Dates: start: 20160116, end: 20160116
  13. TOBRAMYCIN. [Concomitant]
     Active Substance: TOBRAMYCIN
     Dosage: 200 MG, UNK
     Route: 042
     Dates: start: 20151211, end: 20151212
  14. PEGFILGRASTIM [Suspect]
     Active Substance: PEGFILGRASTIM
     Dosage: UNK
     Route: 058
     Dates: start: 20151227
  15. PEGFILGRASTIM [Suspect]
     Active Substance: PEGFILGRASTIM
     Dosage: UNK
     Route: 058
     Dates: start: 20160117
  16. CYCLOPHOSPHAMIDE. [Concomitant]
     Active Substance: CYCLOPHOSPHAMIDE
     Dosage: 880 MG, UNK
     Route: 042
     Dates: start: 20151205, end: 20151205
  17. PEGFILGRASTIM [Suspect]
     Active Substance: PEGFILGRASTIM
     Indication: FEBRILE NEUTROPENIA
     Dosage: UNK
     Route: 058
     Dates: start: 20151206
  18. FILGRASTIM [Concomitant]
     Active Substance: FILGRASTIM
     Dosage: 150 MUG, UNK
     Route: 058
     Dates: start: 20151231, end: 20160102

REACTIONS (1)
  - Neutropenia [Recovered/Resolved]

NARRATIVE: CASE EVENT DATE: 20160122
